FAERS Safety Report 5265395-8 (Version None)
Quarter: 2007Q1

REPORT INFORMATION
  Report Type: 
  Country: None (occurrence: None)
  Receive Date: 20070314
  Receipt Date: 20070302
  Transmission Date: 20070707
  Serious: Yes (Other)
  Sender: FDA-Public Use
  Company Number: US-SHR-US-2007-000409

PATIENT
  Age: 55 Year
  Sex: Female
  Weight: 48.98 kg

DRUGS (5)
  1. BETASERON [Suspect]
     Dosage: 8 MIU, EVERY 2D
     Route: 058
     Dates: start: 19940726
  2. BACLOFEN [Concomitant]
     Dosage: 10 MG, 2X/DAY
  3. RITALIN [Concomitant]
     Dosage: 10 MG, 1X/DAY
  4. DIAZEPAM [Concomitant]
     Dosage: 2 MG, 3X/DAY
  5. PHENOBARBITAL TAB [Concomitant]
     Dosage: 32.4 MG, 3X/DAY

REACTIONS (1)
  - UTERINE CANCER [None]
